FAERS Safety Report 17501134 (Version 3)
Quarter: 2020Q2

REPORT INFORMATION
  Report Type: Spontaneous
  Country: CA (occurrence: CA)
  Receive Date: 20200305
  Receipt Date: 20200608
  Transmission Date: 20200713
  Serious: Yes (Other)
  Sender: FDA-Public Use
  Company Number: CA-PFIZER INC-2019390899

PATIENT
  Age: 49 Year
  Sex: Female

DRUGS (3)
  1. XELJANZ [Suspect]
     Active Substance: TOFACITINIB CITRATE
     Dosage: 10 MG, 2X/DAY
     Route: 048
     Dates: start: 202003
  2. XELJANZ [Suspect]
     Active Substance: TOFACITINIB CITRATE
     Dosage: 5 MG, 2X/DAY, (BID)
     Route: 048
     Dates: end: 202003
  3. XELJANZ [Suspect]
     Active Substance: TOFACITINIB CITRATE
     Indication: COLITIS ULCERATIVE
     Dosage: 10 MG, 2X/DAY
     Route: 048
     Dates: start: 20190831

REACTIONS (14)
  - Groin pain [Unknown]
  - Faeces discoloured [Unknown]
  - Diarrhoea haemorrhagic [Unknown]
  - Amenorrhoea [Unknown]
  - Anxiety [Unknown]
  - Alopecia [Unknown]
  - Diarrhoea [Unknown]
  - Malaise [Unknown]
  - Dizziness [Unknown]
  - Anaemia [Unknown]
  - Influenza like illness [Unknown]
  - Fatigue [Not Recovered/Not Resolved]
  - Poor peripheral circulation [Unknown]
  - Insomnia [Unknown]

NARRATIVE: CASE EVENT DATE: 2019
